FAERS Safety Report 6234759-8 (Version None)
Quarter: 2009Q2

REPORT INFORMATION
  Report Type: 
  Country: None (occurrence: None)
  Receive Date: 20090618
  Receipt Date: 20090608
  Transmission Date: 20091009
  Serious: Yes (Other)
  Sender: FDA-Public Use
  Company Number: HU-WYE-H09756909

PATIENT
  Age: 55 Year
  Sex: Male

DRUGS (4)
  1. CORDARONE [Suspect]
     Indication: VENTRICULAR TACHYCARDIA
     Dosage: NOT PROVIDED
  2. CORDARONE [Suspect]
     Indication: VENTRICULAR EXTRASYSTOLES
  3. METOPROLOL SUCCINATE [Suspect]
     Indication: VENTRICULAR TACHYCARDIA
  4. METOPROLOL SUCCINATE [Suspect]
     Indication: VENTRICULAR EXTRASYSTOLES

REACTIONS (3)
  - CONDITION AGGRAVATED [None]
  - DRUG INEFFECTIVE [None]
  - LEFT VENTRICULAR DYSFUNCTION [None]
